FAERS Safety Report 8457148-4 (Version None)
Quarter: 2012Q2

REPORT INFORMATION
  Report Type: 
  Country: None (occurrence: None)
  Receive Date: 20120621
  Receipt Date: 20120522
  Transmission Date: 20120825
  Serious: Yes (Hospitalization)
  Sender: FDA-Public Use
  Company Number: PHHY2011US57468

PATIENT
  Sex: Female

DRUGS (1)
  1. RECLAST [Suspect]
     Dosage: YEARLY
     Route: 042
     Dates: start: 20110623

REACTIONS (6)
  - BLOOD PRESSURE DECREASED [None]
  - DIZZINESS [None]
  - CONFUSIONAL STATE [None]
  - MALAISE [None]
  - INFLUENZA LIKE ILLNESS [None]
  - DEHYDRATION [None]
